FAERS Safety Report 15656722 (Version 3)
Quarter: 2019Q2

REPORT INFORMATION
  Report Type: Spontaneous
  Country: JP (occurrence: JP)
  Receive Date: 20181126
  Receipt Date: 20190604
  Transmission Date: 20190711
  Serious: Yes (Life-Threatening, Hospitalization)
  Sender: FDA-Public Use
  Company Number: JP-SA-2018SA314528

PATIENT
  Age: 56 Year
  Sex: Male
  Weight: 83 kg

DRUGS (6)
  1. LANTUS SOLOSTAR [Suspect]
     Active Substance: INSULIN GLARGINE
     Dosage: UNK
     Route: 058
     Dates: start: 201809, end: 201809
  2. LANTUS SOLOSTAR [Suspect]
     Active Substance: INSULIN GLARGINE
     Indication: DIABETES MELLITUS INADEQUATE CONTROL
     Dosage: DAILY DOSAGE: 12 UNITS
     Route: 058
     Dates: start: 201704, end: 201806
  3. LANTUS SOLOSTAR [Suspect]
     Active Substance: INSULIN GLARGINE
     Indication: TYPE 2 DIABETES MELLITUS
     Dosage: DAILY DOSAGE: 10 UNITS
     Route: 058
     Dates: start: 201703, end: 201704
  4. LANTUS SOLOSTAR [Suspect]
     Active Substance: INSULIN GLARGINE
     Dosage: 15 - 16 UNITS
     Route: 058
     Dates: start: 201806, end: 20180630
  5. PITAVASTATIN CA [Suspect]
     Active Substance: PITAVASTATIN CALCIUM
     Indication: DYSLIPIDAEMIA
     Dosage: UNK
     Route: 048
     Dates: start: 201712, end: 20180630
  6. PITAVASTATIN CA [Suspect]
     Active Substance: PITAVASTATIN CALCIUM
     Dosage: UNK
     Route: 048
     Dates: start: 20180702

REACTIONS (11)
  - Drug hypersensitivity [Recovered/Resolved]
  - Dyspnoea [Recovered/Resolved]
  - Injection site swelling [Recovered/Resolved]
  - Drug hypersensitivity [Recovered/Resolved]
  - Vomiting [Recovered/Resolved]
  - Pruritus generalised [Recovered/Resolved]
  - Urticaria [Recovered/Resolved]
  - Injection site rash [Recovered/Resolved]
  - Dyspnoea [Recovered/Resolved]
  - Urticaria [Recovered/Resolved]
  - Intentional overdose [Unknown]

NARRATIVE: CASE EVENT DATE: 2017
